FAERS Safety Report 19189985 (Version 1)
Quarter: 2021Q2

REPORT INFORMATION
  Report Type: Spontaneous
  Country: CA (occurrence: CA)
  Receive Date: 20210428
  Receipt Date: 20210428
  Transmission Date: 20210717
  Serious: Yes (Hospitalization, Other)
  Sender: FDA-Public Use
  Company Number: CA-DRREDDYS-USA/CAN/21/0134915

PATIENT
  Age: 47 Year
  Sex: Female

DRUGS (22)
  1. TIOTROPIUM [Concomitant]
     Active Substance: TIOTROPIUM
     Indication: CHRONIC OBSTRUCTIVE PULMONARY DISEASE
     Route: 055
  2. FUROSEMIDE. [Concomitant]
     Active Substance: FUROSEMIDE
     Indication: OEDEMA PERIPHERAL
     Dosage: ONCE DAILY
     Route: 048
  3. FLUOXETINE 40MG [Interacting]
     Active Substance: FLUOXETINE HYDROCHLORIDE
     Route: 048
  4. METHADONE [Interacting]
     Active Substance: METHADONE HYDROCHLORIDE
     Indication: DRUG USE DISORDER
     Route: 048
  5. FLUOXETINE 40MG [Suspect]
     Active Substance: FLUOXETINE HYDROCHLORIDE
     Indication: MAJOR DEPRESSION
     Route: 048
  6. FLUOXETINE 40MG [Interacting]
     Active Substance: FLUOXETINE HYDROCHLORIDE
     Route: 048
  7. RISPERIDONE. [Interacting]
     Active Substance: RISPERIDONE
     Indication: AFFECTIVE DISORDER
     Route: 048
  8. DOXEPIN [Interacting]
     Active Substance: DOXEPIN
     Indication: MAJOR DEPRESSION
     Route: 048
  9. DOXEPIN [Interacting]
     Active Substance: DOXEPIN
     Route: 048
  10. QUETIAPINE. [Interacting]
     Active Substance: QUETIAPINE
     Dosage: EXTENDED?RELEASE AT BEDTIME
     Route: 048
  11. CYCLOBENZAPRINE. [Interacting]
     Active Substance: CYCLOBENZAPRINE
     Indication: PAIN
     Route: 048
  12. QUETIAPINE. [Interacting]
     Active Substance: QUETIAPINE
     Indication: MAJOR DEPRESSION
     Dosage: 25 TO 50 MG IMMEDIATE?RELEASE 4 TIMES DAILY AS NEEDED
     Route: 048
  13. SALBUTAMOL [Concomitant]
     Active Substance: ALBUTEROL
     Indication: CHRONIC OBSTRUCTIVE PULMONARY DISEASE
     Dosage: BID
     Route: 055
  14. DOXEPIN [Interacting]
     Active Substance: DOXEPIN
     Route: 048
  15. ATENOLOL. [Concomitant]
     Active Substance: ATENOLOL
     Indication: HYPERTENSION
     Route: 048
  16. FLUOXETINE 40MG [Interacting]
     Active Substance: FLUOXETINE HYDROCHLORIDE
     Route: 048
  17. DIVALPROEX [Interacting]
     Active Substance: DIVALPROEX SODIUM
     Dosage: 500 MG AT BEDTIME
     Route: 048
  18. LORAZEPAM. [Interacting]
     Active Substance: LORAZEPAM
     Indication: WITHDRAWAL SYNDROME
     Dosage: 1 TO 2 MG PO 4 TIMES DAILY AS NEEDED
     Route: 048
  19. NAPROXEN. [Concomitant]
     Active Substance: NAPROXEN
     Indication: PAIN
     Dosage: BID
     Route: 048
  20. GABAPENTIN. [Interacting]
     Active Substance: GABAPENTIN
     Indication: PAIN
     Route: 048
  21. DIVALPROEX [Interacting]
     Active Substance: DIVALPROEX SODIUM
     Indication: AFFECTIVE DISORDER
     Dosage: 250 MG IN THE MORNING
     Route: 048
  22. ESTRADIOL. [Concomitant]
     Active Substance: ESTRADIOL
     Indication: ENDOMETRIOSIS
     Route: 048

REACTIONS (4)
  - Drug interaction [Recovering/Resolving]
  - Respiratory depression [Recovering/Resolving]
  - Toxicity to various agents [Recovering/Resolving]
  - Depressed level of consciousness [Recovering/Resolving]
